FAERS Safety Report 8782233 (Version 1)
Quarter: 2012Q4

REPORT INFORMATION
  Report Type: Report from Study
  Country: US (occurrence: US)
  Receive Date: 20120913
  Receipt Date: 20120913
  Transmission Date: 20130627
  Serious: No
  Sender: FDA-Public Use
  Company Number: US-VERTEX PHARMACEUTICAL INC.-AE-2012-009761

PATIENT
  Age: 55 Year
  Sex: Male
  Weight: 73.18 kg

DRUGS (8)
  1. INCIVEK [Suspect]
     Indication: HEPATITIS C
     Route: 048
     Dates: start: 20120615
  2. RIBASPHERE [Concomitant]
     Indication: HEPATITIS C
     Dates: start: 20120615
  3. PEGASYS [Concomitant]
     Indication: HEPATITIS C
     Route: 058
     Dates: start: 20120615
  4. GABAPENTIN [Concomitant]
     Dates: start: 2011
  5. TRAMADOL [Concomitant]
     Dates: start: 2011
  6. BACLOFEN [Concomitant]
     Dates: start: 2011
  7. MELIXOCAM [Concomitant]
     Dates: start: 2011
  8. ZOLPIDEM [Concomitant]
     Dates: start: 2011

REACTIONS (4)
  - Headache [Not Recovered/Not Resolved]
  - Apathy [Not Recovered/Not Resolved]
  - Asthenia [Not Recovered/Not Resolved]
  - Nausea [Not Recovered/Not Resolved]
